FAERS Safety Report 7758585-3 (Version None)
Quarter: 2011Q3

REPORT INFORMATION
  Report Type: 
  Country: None (occurrence: None)
  Receive Date: 20110919
  Receipt Date: 20110907
  Transmission Date: 20111222
  Serious: Yes (Other)
  Sender: FDA-Public Use
  Company Number: ES-ELI_LILLY_AND_COMPANY-ES201109001853

PATIENT
  Age: 7 Year
  Sex: Male
  Weight: 21 kg

DRUGS (1)
  1. STRATTERA [Suspect]
     Dosage: UNK
     Dates: start: 20110903

REACTIONS (4)
  - NAUSEA [None]
  - VOMITING [None]
  - HAEMATEMESIS [None]
  - MALAISE [None]
